FAERS Safety Report 12908648 (Version 1)
Quarter: 2016Q4

REPORT INFORMATION
  Report Type: Spontaneous
  Country: DK (occurrence: DK)
  Receive Date: 20161103
  Receipt Date: 20161103
  Transmission Date: 20170207
  Serious: Yes (Other)
  Sender: FDA-Public Use
  Company Number: DK-SA-2015SA186110

PATIENT
  Age: 47 Year
  Sex: Female
  Weight: 68 kg

DRUGS (1)
  1. LEMTRADA [Suspect]
     Active Substance: ALEMTUZUMAB
     Indication: MULTIPLE SCLEROSIS
     Dosage: PATIENT HAD RECEIVED THE FIRST FIVE INFUSIONS OF ALEMTUZUMAB IN MAY-2015.
     Route: 042
     Dates: start: 20150518

REACTIONS (3)
  - Weight decreased [Recovered/Resolved]
  - Hyperthyroidism [Recovered/Resolved]
  - Tremor [Unknown]

NARRATIVE: CASE EVENT DATE: 20151106
